FAERS Safety Report 6273983-5 (Version None)
Quarter: 2009Q3

REPORT INFORMATION
  Report Type: 
  Country: None (occurrence: None)
  Receive Date: 20090720
  Receipt Date: 20090707
  Transmission Date: 20100115
  Serious: Yes (Other)
  Sender: FDA-Public Use
  Company Number: AE-ROCHE-643295

PATIENT
  Sex: Female

DRUGS (2)
  1. PEGASYS [Suspect]
     Route: 058
     Dates: start: 20080329, end: 20090221
  2. RIBAVIRIN [Suspect]
     Dosage: DOSE REPORTED AS 200
     Route: 048
     Dates: start: 20080329, end: 20090221

REACTIONS (2)
  - CONDITION AGGRAVATED [None]
  - EPILEPSY [None]
